FAERS Safety Report 7223955-9 (Version None)
Quarter: 2011Q1

REPORT INFORMATION
  Report Type: 
  Country: None (occurrence: None)
  Receive Date: 20110113
  Receipt Date: 20110104
  Transmission Date: 20110831
  Serious: No
  Sender: FDA-Public Use
  Company Number: US-BIOGENIDEC-2011BI000638

PATIENT
  Sex: Female

DRUGS (1)
  1. TYSABRI [Suspect]
     Indication: MULTIPLE SCLEROSIS
     Route: 042
     Dates: start: 20090501

REACTIONS (7)
  - GAIT DISTURBANCE [None]
  - BLOOD PRESSURE INCREASED [None]
  - HEADACHE [None]
  - VIBRATORY SENSE INCREASED [None]
  - HYPOAESTHESIA [None]
  - INFLAMMATION [None]
  - DRUG INEFFECTIVE [None]
